FAERS Safety Report 5308231-3 (Version None)
Quarter: 2007Q2

REPORT INFORMATION
  Report Type: 
  Country: None (occurrence: None)
  Receive Date: 20070426
  Receipt Date: 20070416
  Transmission Date: 20071010
  Serious: Yes (Hospitalization)
  Sender: FDA-Public Use
  Company Number: FR-NOVOPROD-262776

PATIENT
  Age: 83 Year
  Sex: Male

DRUGS (5)
  1. NOVONORM [Suspect]
     Indication: INSULIN-REQUIRING TYPE II DIABETES MELLITUS
  2. XATRAL                             /00975301/ [Concomitant]
  3. PRITOR                             /01421801/ [Concomitant]
  4. VITAMINA K [Concomitant]
  5. NILUTAMIDE [Concomitant]
     Indication: PROSTATE CANCER
     Dates: start: 20061201

REACTIONS (4)
  - NAUSEA [None]
  - TINNITUS [None]
  - VERTIGO POSITIONAL [None]
  - VOMITING [None]
